FAERS Safety Report 15726881 (Version 2)
Quarter: 2019Q1

REPORT INFORMATION
  Report Type: Spontaneous
  Country: CO (occurrence: CO)
  Receive Date: 20181217
  Receipt Date: 20190203
  Transmission Date: 20190417
  Serious: Yes (Hospitalization)
  Sender: FDA-Public Use
  Company Number: CO-AMGEN-COLSP2016160846

PATIENT
  Age: 56 Year
  Sex: Female

DRUGS (2)
  1. ENBREL [Suspect]
     Active Substance: ETANERCEPT
     Indication: PSORIATIC ARTHROPATHY
     Dosage: 50 MG, UNK
     Route: 058
     Dates: start: 201210
  2. ENBREL [Suspect]
     Active Substance: ETANERCEPT
     Dosage: 50 MG, WEEKLY
     Route: 058
     Dates: start: 2013, end: 201611

REACTIONS (8)
  - Bacterial infection [Unknown]
  - Injection site haemorrhage [Unknown]
  - Influenza [Not Recovered/Not Resolved]
  - Swelling [Unknown]
  - Wrong technique in product usage process [Unknown]
  - Injection site bruising [Not Recovered/Not Resolved]
  - Oropharyngeal pain [Not Recovered/Not Resolved]
  - Cystitis [Not Recovered/Not Resolved]

NARRATIVE: CASE EVENT DATE: 201610
